FAERS Safety Report 8846214 (Version 1)
Quarter: 2012Q4

REPORT INFORMATION
  Report Type: Report from Study
  Country: US (occurrence: US)
  Receive Date: 20121017
  Receipt Date: 20121017
  Transmission Date: 20130627
  Serious: Yes (Hospitalization)
  Sender: FDA-Public Use
  Company Number: US-JNJFOC-20121008025

PATIENT
  Age: 15 Year
  Sex: Male
  Weight: 74.9 kg

DRUGS (5)
  1. REMICADE [Suspect]
     Indication: CROHN^S DISEASE
     Route: 042
     Dates: start: 20100702
  2. PREDNISONE [Concomitant]
  3. PRILOSEC [Concomitant]
  4. 5-ASA [Concomitant]
  5. CALCIUM CITRATE [Concomitant]

REACTIONS (1)
  - Crohn^s disease [Recovered/Resolved]
